APPROVED DRUG PRODUCT: CYKLOKAPRON
Active Ingredient: TRANEXAMIC ACID
Strength: 500MG
Dosage Form/Route: TABLET;ORAL
Application: N019280 | Product #001
Applicant: PHARMACIA AND UPJOHN CO
Approved: Dec 30, 1986 | RLD: No | RS: No | Type: DISCN